FAERS Safety Report 8826736 (Version 2)
Quarter: 2013Q1

REPORT INFORMATION
  Report Type: Spontaneous
  Country: US (occurrence: US)
  Receive Date: 20121005
  Receipt Date: 20130128
  Transmission Date: 20140127
  Serious: Yes (Death)
  Sender: FDA-Public Use
  Company Number: US-GLAXOSMITHKLINE-A0996179A

PATIENT
  Age: 25 Year
  Sex: Male

DRUGS (2)
  1. VOTRIENT [Suspect]
     Indication: TESTIS CANCER
     Dosage: 400MG ALTERNATE DAYS
     Route: 065
     Dates: start: 20120804
  2. UNKNOWN [Concomitant]

REACTIONS (5)
  - Malignant neoplasm progression [Fatal]
  - Desmoplastic small round cell tumour [Unknown]
  - Metastases to peritoneum [Unknown]
  - Metastases to thorax [Unknown]
  - Drug ineffective [Unknown]
